FAERS Safety Report 24781871 (Version 1)
Quarter: 2024Q4

REPORT INFORMATION
  Report Type: Spontaneous
  Country: US (occurrence: US)
  Receive Date: 20241227
  Receipt Date: 20241227
  Transmission Date: 20250115
  Serious: Yes (Other)
  Sender: Orbicular Pharmaceutical Technologies
  Company Number: US-Orbicular Pharamceutical Technologies Pvt Ltd-2167891

PATIENT
  Age: 15 Year
  Sex: Female

DRUGS (1)
  1. ARSENIC TRIOXIDE [Suspect]
     Active Substance: ARSENIC TRIOXIDE
     Indication: Acute promyelocytic leukaemia
     Dates: start: 20241217, end: 20241217

REACTIONS (2)
  - Muscular weakness [Unknown]
  - Tachycardia [Unknown]

NARRATIVE: CASE EVENT DATE: 20241217
